FAERS Safety Report 5915301-5 (Version None)
Quarter: 2008Q3

REPORT INFORMATION
  Report Type: 
  Country: None (occurrence: None)
  Receive Date: 20080909
  Receipt Date: 20080208
  Transmission Date: 20090109
  Serious: Yes (Hospitalization)
  Sender: FDA-Public Use
  Company Number: 163-20785-08010369

PATIENT
  Age: 41 Year
  Sex: Female
  Weight: 82.1011 kg

DRUGS (13)
  1. THALOMID [Suspect]
     Indication: MULTIPLE MYELOMA
     Dosage: 150 MG DAILY ORAL
     Route: 048
     Dates: start: 20050101, end: 20071229
  2. LEXIPRO [Concomitant]
  3. LASIX [Concomitant]
  4. METHYLPHENIDATE HCL [Concomitant]
  5. OXYCODONE HCL [Concomitant]
  6. POTASSIUM CHLORIDE [Concomitant]
  7. AMBIEN [Concomitant]
  8. OXYCONTIN [Concomitant]
  9. PHENERGEN [Concomitant]
  10. PROTONICS [Concomitant]
  11. RITALIN (METHYLPHENIATE HYDROCHLORIDE) [Concomitant]
  12. SENOKOT [Concomitant]
  13. CYMBALTA [Concomitant]

REACTIONS (1)
  - PNEUMONIA [None]
